FAERS Safety Report 8294734-9 (Version None)
Quarter: 2012Q2

REPORT INFORMATION
  Report Type: 
  Country: None (occurrence: None)
  Receive Date: 20120418
  Receipt Date: 20120410
  Transmission Date: 20120825
  Serious: Yes (Hospitalization)
  Sender: FDA-Public Use
  Company Number: JP-ABBOTT-11P-087-0731910-00

PATIENT
  Sex: Male
  Weight: 48 kg

DRUGS (3)
  1. HUMIRA [Suspect]
     Dates: start: 20110401, end: 20110401
  2. HUMIRA [Suspect]
     Dates: start: 20110415, end: 20110501
  3. HUMIRA [Suspect]
     Indication: CROHN'S DISEASE
     Route: 058
     Dates: start: 20110318, end: 20110318

REACTIONS (6)
  - DEHYDRATION [None]
  - GASTROINTESTINAL STOMA COMPLICATION [None]
  - SHORT-BOWEL SYNDROME [None]
  - HYPERURICAEMIA [None]
  - TUBERCULOSIS [None]
  - QUALITY OF LIFE DECREASED [None]
